FAERS Safety Report 8759341 (Version 2)
Quarter: 2012Q4

REPORT INFORMATION
  Report Type: 
  Country: US (occurrence: US)
  Receive Date: 20120829
  Receipt Date: 20121002
  Transmission Date: 20130627
  Serious: No
  Sender: FDA-Public Use
  Company Number: US-009507513-1208USA010482

PATIENT
  Age: 72 Year
  Sex: Male
  Weight: 68.27 kg

DRUGS (5)
  1. MIRALAX [Suspect]
     Indication: OBSTRUCTION
     Dosage: 17 g, qd
     Route: 048
     Dates: start: 20120803
  2. MIRALAX [Suspect]
     Indication: MEDICAL OBSERVATION
     Dosage: 17 g, qod
     Route: 048
  3. AMLODIPINE [Concomitant]
     Indication: HYPERTENSION
     Dosage: UNK, Unknown
  4. HYDROCHLOROTHIAZIDE [Concomitant]
     Indication: HYPERTENSION
     Dosage: UNK, Unknown
  5. VITAMINS (UNSPECIFIED) [Concomitant]
     Indication: PRODUCT USED FOR UNKNOWN INDICATION
     Dosage: UNK, Unknown

REACTIONS (2)
  - Weight decreased [Unknown]
  - Incorrect drug administration duration [Unknown]
